FAERS Safety Report 19235903 (Version 1)
Quarter: 2021Q2

REPORT INFORMATION
  Report Type: Spontaneous
  Country: US (occurrence: US)
  Receive Date: 20210510
  Receipt Date: 20210510
  Transmission Date: 20210717
  Serious: No
  Sender: FDA-Public Use
  Company Number: US-JNJFOC-20210504022

PATIENT

DRUGS (3)
  1. MOTRIN [Suspect]
     Active Substance: IBUPROFEN
     Indication: HEADACHE
  2. MOTRIN [Suspect]
     Active Substance: IBUPROFEN
     Indication: PAIN
  3. MOTRIN [Suspect]
     Active Substance: IBUPROFEN
     Indication: CHILLS
     Route: 065

REACTIONS (1)
  - Product use in unapproved indication [Unknown]
